FAERS Safety Report 10159354 (Version 1)
Quarter: 2014Q2

REPORT INFORMATION
  Report Type: Spontaneous
  Country: US (occurrence: US)
  Receive Date: 20140508
  Receipt Date: 20140508
  Transmission Date: 20141212
  Serious: No
  Sender: FDA-Public Use
  Company Number: US-B.I. PHARMACEUTICALS,INC./RIDGEFIELD-2014-BI-20026BP

PATIENT
  Age: 63 Year
  Sex: Male

DRUGS (3)
  1. JENTADUETO [Suspect]
     Indication: DIABETES MELLITUS
     Dosage: STRENGTH: 2.5 MG / 500 MG; DAILY DOSE: 5MG/1000MG
     Route: 048
     Dates: start: 201402
  2. BIMOVO [Concomitant]
     Indication: PAIN
     Route: 048
  3. GABAPENTIN [Concomitant]
     Dosage: 1200 MG
     Route: 048

REACTIONS (3)
  - Swelling face [Recovered/Resolved]
  - Pruritus [Recovered/Resolved]
  - Rash generalised [Recovered/Resolved]
